FAERS Safety Report 5270170-4 (Version None)
Quarter: 2007Q1

REPORT INFORMATION
  Report Type: 
  Country: None (occurrence: None)
  Receive Date: 20070320
  Receipt Date: 20070315
  Transmission Date: 20070707
  Serious: Yes (Death, Life-Threatening, Other)
  Sender: FDA-Public Use
  Company Number: HQWYE533827JAN06

PATIENT
  Sex: Female
  Weight: 53 kg

DRUGS (4)
  1. GEMTUZUMAB OZOGAMICIN [Suspect]
     Indication: ACUTE MYELOID LEUKAEMIA
     Route: 042
     Dates: start: 20060120, end: 20060120
  2. AMIKACIN [Concomitant]
     Dosage: NOT PROVIDED
     Dates: start: 20060113, end: 20060125
  3. TEICOPLANIN [Concomitant]
     Dosage: NOT PROVIDED
     Dates: start: 20060113, end: 20060125
  4. MEROPENEM [Concomitant]
     Dosage: NOT PROVIDED
     Dates: start: 20060113, end: 20060125

REACTIONS (2)
  - HYPOTENSION [None]
  - SEPTIC SHOCK [None]
